FAERS Safety Report 5592572-9 (Version None)
Quarter: 2007Q4

REPORT INFORMATION
  Report Type: 
  Country: None (occurrence: None)
  Receive Date: 20071217
  Receipt Date: 20070920
  Transmission Date: 20080405
  Serious: Yes (Life-Threatening)
  Sender: FDA-Public Use
  Company Number: 13773734

PATIENT
  Sex: Male

DRUGS (6)
  1. EMSAM [Suspect]
     Indication: DEPRESSION
     Dosage: TD
     Route: 062
     Dates: start: 20061106, end: 20070508
  2. SEROQUEL [Concomitant]
  3. LAMICTAL [Concomitant]
  4. XANAX [Concomitant]
  5. LUNESTA [Concomitant]
  6. AMBIEN CR [Concomitant]

REACTIONS (4)
  - ANOREXIA [None]
  - DRUG TOLERANCE DECREASED [None]
  - SUICIDAL IDEATION [None]
  - WEIGHT DECREASED [None]
